FAERS Safety Report 4114812 (Version 8)
Quarter: 2020Q2

REPORT INFORMATION
  Report Type: Report from Study
  Country: FR (occurrence: FR)
  Receive Date: 20040319
  Receipt Date: 20200622
  Transmission Date: 20200714
  Serious: Yes (Death, Hospitalization)
  Sender: FDA-Public Use
  Company Number: FR-JNJFOC-20040301753

PATIENT
  Age: 57 Year
  Sex: Male
  Weight: 73 kg

DRUGS (17)
  1. TETRAZEPAM [Concomitant]
     Active Substance: TETRAZEPAM
     Route: 048
     Dates: start: 200304
  2. NAFTIDROFURYL [Concomitant]
     Active Substance: NAFRONYL
  3. REMICADE [Suspect]
     Active Substance: INFLIXIMAB
     Dosage: 370 MG
     Route: 042
     Dates: end: 20040127
  4. CELECOXIB. [Concomitant]
     Active Substance: CELECOXIB
  5. TOPALGIC                           /00645401/ [Concomitant]
     Active Substance: SUPROFEN
  6. OMEPRAZOLE. [Concomitant]
     Active Substance: OMEPRAZOLE
     Route: 048
     Dates: start: 200304
  7. BENFLUOREX [Concomitant]
     Active Substance: BENFLUOREX
  8. EUPANTOL [Concomitant]
     Active Substance: PANTOPRAZOLE SODIUM
  9. VOLTARENE [Concomitant]
     Indication: PAIN
     Route: 048
     Dates: start: 20040120, end: 20040301
  10. REMICADE [Suspect]
     Active Substance: INFLIXIMAB
     Indication: ANKYLOSING SPONDYLITIS
     Dosage: 370 MG
     Route: 042
     Dates: start: 20031010
  11. HEXAQUINE [Concomitant]
     Active Substance: NIAOULI OIL\QUININE BENZOATE\THIAMINE HYDROCHLORIDE
  12. MAGNE B6 [Concomitant]
     Active Substance: MAGNESIUM\PYRIDOXINE
  13. PROPOFAN [Concomitant]
     Active Substance: ACETAMINOPHEN\CAFFEINE\PROPOXYPHENE
     Indication: PAIN
     Route: 048
     Dates: start: 20040228
  14. ANTALVIC [Concomitant]
     Active Substance: PROPOXYPHENE HYDROCHLORIDE
     Indication: PAIN
     Route: 048
     Dates: start: 20040210
  15. THIOCOLCHICOZIDE [Concomitant]
     Route: 048
     Dates: start: 200304
  16. MEDIATOR [Concomitant]
     Active Substance: BENFLUOREX
     Route: 048
     Dates: start: 20030905
  17. DOLIPRANE [Concomitant]
     Active Substance: ACETAMINOPHEN

REACTIONS (4)
  - Emphysema [Unknown]
  - Amyotrophic lateral sclerosis [Fatal]
  - Muscle spasms [Not Recovered/Not Resolved]
  - Ankylosing spondylitis [Unknown]

NARRATIVE: CASE EVENT DATE: 200403
